FAERS Safety Report 18221344 (Version 3)
Quarter: 2020Q4

REPORT INFORMATION
  Report Type: Other
  Country: US (occurrence: US)
  Receive Date: 20200902
  Receipt Date: 20201224
  Transmission Date: 20210113
  Serious: Yes (Other)
  Sender: FDA-Public Use
  Company Number: US-ROCHE-2633470

PATIENT
  Sex: Female

DRUGS (2)
  1. ACTEMRA [Suspect]
     Active Substance: TOCILIZUMAB
  2. ACTEMRA [Suspect]
     Active Substance: TOCILIZUMAB
     Indication: RHEUMATOID ARTHRITIS
     Route: 058

REACTIONS (8)
  - Pain in extremity [Unknown]
  - Blood disorder [Unknown]
  - Foot fracture [Unknown]
  - Peripheral swelling [Unknown]
  - Limb injury [Unknown]
  - Erythema [Unknown]
  - Hypertension [Unknown]
  - Visual impairment [Unknown]
